FAERS Safety Report 9970128 (Version 3)
Quarter: 2014Q2

REPORT INFORMATION
  Report Type: Report from Study
  Country: US (occurrence: US)
  Receive Date: 20140306
  Receipt Date: 20140506
  Transmission Date: 20141212
  Serious: Yes (Other)
  Sender: FDA-Public Use
  Company Number: US-NAPPMUNDI-USA-2014-0111624

PATIENT
  Age: 56 Year
  Sex: Male

DRUGS (1)
  1. OXY CR TAB [Suspect]
     Indication: INJURY
     Dosage: 80 MG, TID
     Route: 048

REACTIONS (1)
  - Prostate cancer [Not Recovered/Not Resolved]
